FAERS Safety Report 24917981 (Version 1)
Quarter: 2025Q1

REPORT INFORMATION
  Report Type: Spontaneous
  Country: JP (occurrence: JP)
  Receive Date: 20250203
  Receipt Date: 20250203
  Transmission Date: 20250408
  Serious: Yes (Other)
  Sender: PFIZER
  Company Number: JP-PFIZER INC-202500020868

PATIENT
  Sex: Female

DRUGS (3)
  1. SPIRONOLACTONE [Suspect]
     Active Substance: SPIRONOLACTONE
     Indication: Oedema
     Route: 048
  2. SPIRONOLACTONE [Suspect]
     Active Substance: SPIRONOLACTONE
     Indication: Hypokalaemia
  3. WARFARIN [Concomitant]
     Active Substance: WARFARIN
     Route: 048

REACTIONS (2)
  - Arrhythmia [Unknown]
  - Condition aggravated [Unknown]
